FAERS Safety Report 4530229-3 (Version None)
Quarter: 2004Q4

REPORT INFORMATION
  Report Type: 
  Country: None (occurrence: None)
  Receive Date: 20041215
  Receipt Date: 20041202
  Transmission Date: 20050328
  Serious: Yes (Life-Threatening, Hospitalization)
  Sender: FDA-Public Use
  Company Number: 8007264

PATIENT
  Age: 39 Year
  Sex: Female

DRUGS (4)
  1. KEPPRA [Suspect]
     Indication: PARTIAL SEIZURES
     Dosage: 500 MG 2/D PO
     Route: 048
     Dates: start: 20040812, end: 20040910
  2. TEMOZOLOMID [Suspect]
     Indication: BRAIN NEOPLASM MALIGNANT
     Dosage: 320 MG /D PO
     Route: 048
     Dates: start: 20040812, end: 20040823
  3. TEGRETOL [Concomitant]
  4. NEURONTIN [Concomitant]

REACTIONS (13)
  - CARDIAC MURMUR [None]
  - COSTOVERTEBRAL ANGLE TENDERNESS [None]
  - DYSURIA [None]
  - GAMMA-GLUTAMYLTRANSFERASE INCREASED [None]
  - GENERAL PHYSICAL CONDITION ABNORMAL [None]
  - HAEMATOMA [None]
  - KLEBSIELLA INFECTION [None]
  - PANCYTOPENIA [None]
  - PARTIAL SEIZURES [None]
  - PETECHIAE [None]
  - POLLAKIURIA [None]
  - RESPIRATORY DISORDER [None]
  - UROSEPSIS [None]
